FAERS Safety Report 5577736-2 (Version None)
Quarter: 2007Q4

REPORT INFORMATION
  Report Type: 
  Country: None (occurrence: None)
  Receive Date: 20071227
  Receipt Date: 20071217
  Transmission Date: 20080405
  Serious: Yes (Hospitalization, Other)
  Sender: FDA-Public Use
  Company Number: 2007SP002872

PATIENT
  Sex: Male

DRUGS (6)
  1. PEG-INTRON [Suspect]
     Indication: HEPATITIS C
     Dosage: 120 MCG;
     Dates: start: 20021003, end: 20030908
  2. REBETOL [Suspect]
     Indication: HEPATITIS C
     Dosage: 3 DF;QAM;PO; 2 DF;QPM;PO
     Route: 048
     Dates: start: 20021003, end: 20030908
  3. REBETOL [Suspect]
     Indication: HEPATITIS C
     Dosage: 3 DF;QAM;PO; 2 DF;QPM;PO
     Route: 048
     Dates: start: 20021003, end: 20030908
  4. ZOLOFT [Concomitant]
  5. TETRAZEPAM [Concomitant]
  6. PRILOSEC [Concomitant]

REACTIONS (24)
  - ALANINE AMINOTRANSFERASE INCREASED [None]
  - ALCOHOL ABUSE [None]
  - ARTHRALGIA [None]
  - ASPARTATE AMINOTRANSFERASE INCREASED [None]
  - BACK PAIN [None]
  - BONE MARROW DISORDER [None]
  - COLONIC POLYP [None]
  - CONSTIPATION [None]
  - COUGH [None]
  - DEPRESSION [None]
  - DIARRHOEA [None]
  - GASTRIC PH DECREASED [None]
  - GASTROOESOPHAGEAL REFLUX DISEASE [None]
  - HAEMATOCRIT ABNORMAL [None]
  - HAEMOGLOBIN DECREASED [None]
  - INFLUENZA LIKE ILLNESS [None]
  - INSOMNIA [None]
  - LYMPHOMA [None]
  - MYALGIA [None]
  - PLATELET COUNT DECREASED [None]
  - RASH [None]
  - SUICIDAL IDEATION [None]
  - VISION BLURRED [None]
  - WHITE BLOOD CELL COUNT ABNORMAL [None]
